FAERS Safety Report 9124237 (Version 1)
Quarter: 2013Q1

REPORT INFORMATION
  Report Type: Spontaneous
  Country: US (occurrence: US)
  Receive Date: 20130227
  Receipt Date: 20130227
  Transmission Date: 20140127
  Serious: Yes (Hospitalization)
  Sender: FDA-Public Use
  Company Number: US-B.I. PHARMACEUTICALS,INC./RIDGEFIELD-2013-BI-04865BP

PATIENT
  Age: 81 Year
  Sex: Male

DRUGS (9)
  1. AGGRENOX [Suspect]
     Indication: CEREBROVASCULAR ACCIDENT PROPHYLAXIS
     Route: 048
  2. BUPROPION HCL XL [Concomitant]
     Indication: DEPRESSION
  3. ATORVASTATIN [Concomitant]
     Indication: BLOOD CHOLESTEROL INCREASED
  4. BUMEX [Concomitant]
     Indication: FLUID RETENTION
  5. NOVOLOG [Concomitant]
     Indication: DIABETES MELLITUS
  6. LANTUS [Concomitant]
     Indication: DIABETES MELLITUS
  7. OXYCODONE [Concomitant]
     Indication: PAIN
  8. POTASSIUM CHLORIDE ER [Concomitant]
  9. TAMSULOSIN [Concomitant]
     Indication: PROSTATOMEGALY

REACTIONS (2)
  - Pancytopenia [Not Recovered/Not Resolved]
  - Pneumonia [Not Recovered/Not Resolved]
